FAERS Safety Report 4526400-7 (Version None)
Quarter: 2004Q4

REPORT INFORMATION
  Report Type: 
  Country: None (occurrence: None)
  Receive Date: 20041213
  Receipt Date: 20041102
  Transmission Date: 20050328
  Serious: Yes (Other)
  Sender: FDA-Public Use
  Company Number: 2004-FF-00622FF

PATIENT
  Age: 61 Year
  Sex: Male

DRUGS (2)
  1. MOBIC [Suspect]
     Dosage: 1 TABLET EACH TWO DAYS, PO
     Route: 048
     Dates: end: 20041101
  2. CHONDROSULF (CHONDROITIN SULFATE SODIUM) [Concomitant]

REACTIONS (3)
  - CONDITION AGGRAVATED [None]
  - INTRAOCULAR PRESSURE INCREASED [None]
  - VISION BLURRED [None]
